FAERS Safety Report 15987118 (Version 2)
Quarter: 2019Q1

REPORT INFORMATION
  Report Type: Spontaneous
  Country: US (occurrence: US)
  Receive Date: 20190220
  Receipt Date: 20190314
  Transmission Date: 20190418
  Serious: Yes (Other)
  Sender: FDA-Public Use
  Company Number: US-ENDO PHARMACEUTICALS INC-2019-100737

PATIENT
  Age: 67 Year
  Sex: Male

DRUGS (2)
  1. XIAFLEX [Suspect]
     Active Substance: COLLAGENASE CLOSTRIDIUM HISTOLYTICUM
     Indication: PEYRONIE^S DISEASE
     Dosage: UNK UNKNOWN, FIRST INJECTION
     Route: 026
  2. XIAFLEX [Suspect]
     Active Substance: COLLAGENASE CLOSTRIDIUM HISTOLYTICUM
     Dosage: UNK UNKNOWN, SECOND INJECTION
     Route: 026
     Dates: start: 2018, end: 201806

REACTIONS (7)
  - Acquired phimosis [Recovered/Resolved]
  - Penile haematoma [Not Recovered/Not Resolved]
  - Lymphoedema [Unknown]
  - Wound [Recovered/Resolved]
  - Unevaluable event [Unknown]
  - Penile oedema [Not Recovered/Not Resolved]
  - Phimosis [Not Recovered/Not Resolved]

NARRATIVE: CASE EVENT DATE: 2018
